FAERS Safety Report 11537214 (Version 2)
Quarter: 2015Q4

REPORT INFORMATION
  Report Type: Spontaneous
  Country: JP (occurrence: None)
  Receive Date: 20150922
  Receipt Date: 20151105
  Transmission Date: 20160304
  Serious: Yes (Death, Other)
  Sender: FDA-Public Use
  Company Number: JP-MDT-ADR-2015-01824

PATIENT
  Age: 71 Year
  Sex: Male

DRUGS (1)
  1. GABALON INTRATHECAL [Suspect]
     Active Substance: BACLOFEN

REACTIONS (1)
  - Death [None]
